FAERS Safety Report 18856650 (Version 1)
Quarter: 2021Q1

REPORT INFORMATION
  Report Type: Report from Study
  Country: US (occurrence: US)
  Receive Date: 20210207
  Receipt Date: 20210207
  Transmission Date: 20210420
  Serious: Yes (Hospitalization)
  Sender: FDA-Public Use
  Company Number: US-SHIRE-US202012454

PATIENT
  Sex: Female

DRUGS (1)
  1. GAMMAGARD LIQUID [Suspect]
     Active Substance: HUMAN IMMUNOGLOBULIN G
     Indication: IMMUNODEFICIENCY COMMON VARIABLE
     Dosage: 14 GRAM, 1X/2WKS
     Route: 065

REACTIONS (6)
  - Vitamin B12 abnormal [Recovering/Resolving]
  - Influenza [Unknown]
  - Weight decreased [Recovering/Resolving]
  - Bone marrow myelogram abnormal [Recovering/Resolving]
  - Back injury [Unknown]
  - White blood cell count decreased [Recovering/Resolving]
